FAERS Safety Report 15404064 (Version 1)
Quarter: 2018Q3

REPORT INFORMATION
  Report Type: Spontaneous
  Country: US (occurrence: US)
  Receive Date: 20180919
  Receipt Date: 20180919
  Transmission Date: 20181010
  Serious: No
  Sender: FDA-Public Use
  Company Number: US-AVADEL SPECIALTY PHARMACEUTICALS, LLC-2018AVA00224

PATIENT
  Age: 84 Year
  Sex: Male

DRUGS (2)
  1. NOCTIVA [Suspect]
     Active Substance: DESMOPRESSIN ACETATE
     Dosage: 0.83 ?G, 1X/DAY IN EITHER THE LEFT OR RIGHT NOSTRIL 30 MINUTES BEFORE BEDTIME
     Route: 045
     Dates: start: 20180502, end: 201806
  2. TRAZODONE [Concomitant]
     Active Substance: TRAZODONE HYDROCHLORIDE

REACTIONS (1)
  - Hyponatraemia [Unknown]

NARRATIVE: CASE EVENT DATE: 201805
